FAERS Safety Report 6453358-6 (Version None)
Quarter: 2009Q4

REPORT INFORMATION
  Report Type: 
  Country: None (occurrence: None)
  Receive Date: 20091117
  Receipt Date: 20091103
  Transmission Date: 20100525
  Serious: Yes (Death)
  Sender: FDA-Public Use
  Company Number: 007756

PATIENT
  Age: 62 Year
  Sex: Female

DRUGS (6)
  1. SAMSCA [Suspect]
     Indication: CARDIAC FAILURE CONGESTIVE
     Dosage: 30  MG, DAILY DOSE ORAL
     Route: 048
     Dates: start: 20090925, end: 20091102
  2. SAMSCA [Suspect]
     Indication: HYPONATRAEMIA
     Dosage: 30  MG, DAILY DOSE ORAL
     Route: 048
     Dates: start: 20090925, end: 20091102
  3. CARVEDILOL [Concomitant]
  4. FUROSEMIDE [Concomitant]
  5. SPIRONOLACTONE [Concomitant]
  6. INSULIN [Concomitant]

REACTIONS (4)
  - CARDIAC FAILURE CONGESTIVE [None]
  - OFF LABEL USE [None]
  - PULMONARY HYPERTENSION [None]
  - RIGHT VENTRICULAR FAILURE [None]
